FAERS Safety Report 22067878 (Version 1)
Quarter: 2023Q1

REPORT INFORMATION
  Report Type: Other
  Country: IL (occurrence: None)
  Receive Date: 20230307
  Receipt Date: 20230307
  Transmission Date: 20230417
  Serious: Yes (Other)
  Sender: FDA-Public Use
  Company Number: IL-ROCHE-3300887

PATIENT
  Age: 52 Year
  Sex: Female

DRUGS (6)
  1. RITUXIMAB [Suspect]
     Active Substance: RITUXIMAB
     Indication: Immune thrombocytopenia
     Route: 065
  2. ELTROMBOPAG [Concomitant]
     Active Substance: ELTROMBOPAG
  3. PREDNISONE [Concomitant]
     Active Substance: PREDNISONE
  4. ENOXAPARIN SODIUM [Concomitant]
     Active Substance: ENOXAPARIN SODIUM
     Route: 058
  5. COUMADIN [Concomitant]
     Active Substance: WARFARIN SODIUM
  6. PLAQUENIL [Concomitant]
     Active Substance: HYDROXYCHLOROQUINE SULFATE

REACTIONS (3)
  - Atypical pneumonia [Recovered/Resolved]
  - Sepsis [Recovered/Resolved]
  - Acute respiratory distress syndrome [Unknown]
